FAERS Safety Report 6884090-2 (Version None)
Quarter: 2010Q3

REPORT INFORMATION
  Report Type: 
  Country: None (occurrence: None)
  Receive Date: 20100729
  Receipt Date: 20100723
  Transmission Date: 20110219
  Serious: Yes (Hospitalization)
  Sender: FDA-Public Use
  Company Number: SE-AMGEN-QUU388557

PATIENT
  Age: 62 Year
  Sex: Female

DRUGS (5)
  1. CINACALCET HYDROCHLORIDE [Suspect]
     Indication: PRODUCT USED FOR UNKNOWN INDICATION
     Route: 048
     Dates: start: 20091120, end: 20100101
  2. METFORMIN HCL [Concomitant]
  3. ENALAPRIL [Concomitant]
  4. ALVEDON [Concomitant]
  5. NOVOMIX [Concomitant]

REACTIONS (1)
  - ABDOMINAL PAIN [None]
